FAERS Safety Report 7933534-3 (Version None)
Quarter: 2011Q4

REPORT INFORMATION
  Report Type: 
  Country: None (occurrence: None)
  Receive Date: 20111122
  Receipt Date: 20111109
  Transmission Date: 20120403
  Serious: Yes (Other)
  Sender: FDA-Public Use
  Company Number: US-AMGEN-USASP2011052955

PATIENT
  Age: 56 Year
  Sex: Female
  Weight: 64 kg

DRUGS (2)
  1. ENBREL [Suspect]
     Indication: RHEUMATOID ARTHRITIS
     Dosage: UNK UNK, QWK
     Route: 058
     Dates: start: 20090501
  2. ENBREL [Suspect]
     Dosage: 50 MG, QWK
     Dates: start: 20070101

REACTIONS (4)
  - HAEMATURIA [None]
  - DYSURIA [None]
  - HERPES ZOSTER [None]
  - URINARY TRACT INFECTION [None]
